FAERS Safety Report 22816584 (Version 5)
Quarter: 2023Q4

REPORT INFORMATION
  Report Type: Report from Study
  Country: US (occurrence: US)
  Receive Date: 20230811
  Receipt Date: 20231121
  Transmission Date: 20240110
  Serious: No
  Sender: FDA-Public Use
  Company Number: US-002147023-NVSC2023US175811

PATIENT

DRUGS (1)
  1. KESIMPTA [Suspect]
     Active Substance: OFATUMUMAB
     Indication: Multiple sclerosis
     Dosage: UNK
     Route: 065

REACTIONS (5)
  - Depression [Unknown]
  - Stress [Unknown]
  - Paraesthesia [Unknown]
  - Pain in extremity [Unknown]
  - Malaise [Unknown]
